FAERS Safety Report 8799338 (Version 3)
Quarter: 2012Q4

REPORT INFORMATION
  Report Type: Report from Study
  Country: JP (occurrence: JP)
  Receive Date: 20120919
  Receipt Date: 20121008
  Transmission Date: 20130627
  Serious: Yes (Other)
  Sender: FDA-Public Use
  Company Number: JP-ELI_LILLY_AND_COMPANY-JP201209002907

PATIENT
  Age: 53 Year
  Sex: Male
  Weight: 50.5 kg

DRUGS (6)
  1. DULOXETINE HYDROCHLORIDE [Suspect]
     Indication: MAJOR DEPRESSION
     Dosage: 20 mg, qd
     Route: 048
     Dates: start: 20110817, end: 20110906
  2. DULOXETINE HYDROCHLORIDE [Suspect]
     Dosage: 40 mg, qd
     Route: 048
     Dates: start: 20110907, end: 20120214
  3. DULOXETINE HYDROCHLORIDE [Suspect]
     Dosage: 20 mg, qd
     Route: 048
     Dates: start: 20120215
  4. TOLEDOMIN [Concomitant]
     Indication: MAJOR DEPRESSION
     Dosage: UNK
  5. LOXONIN [Concomitant]
     Indication: TOOTHACHE
     Dosage: UNK, prn
     Route: 048
     Dates: start: 201202, end: 201202
  6. SLOW-K [Concomitant]
     Indication: RHABDOMYOLYSIS
     Dosage: UNK
     Dates: start: 20100916

REACTIONS (1)
  - Hepatic function abnormal [Recovering/Resolving]
